FAERS Safety Report 22639269 (Version 1)
Quarter: 2023Q2

REPORT INFORMATION
  Report Type: Spontaneous
  Country: CA (occurrence: CA)
  Receive Date: 20230626
  Receipt Date: 20230626
  Transmission Date: 20230721
  Serious: Yes (Death, Life-Threatening, Other)
  Sender: FDA-Public Use
  Company Number: CA-MLMSERVICE-20230609-4324492-1

PATIENT
  Age: 16 Year
  Sex: Male

DRUGS (2)
  1. PAROXETINE [Suspect]
     Active Substance: PAROXETINE
     Indication: Obsessive-compulsive disorder
     Dosage: 40 MILLIGRAM (INCREASED THE DOSE)
     Route: 065
  2. PAROXETINE [Suspect]
     Active Substance: PAROXETINE
     Dosage: 20 MILLIGRAM
     Route: 065

REACTIONS (14)
  - Disinhibition [Fatal]
  - Condition aggravated [Fatal]
  - Irritability [Fatal]
  - Judgement impaired [Fatal]
  - Confusional state [Fatal]
  - Aggression [Fatal]
  - Thinking abnormal [Fatal]
  - Completed suicide [Fatal]
  - Initial insomnia [Fatal]
  - Affective disorder [Fatal]
  - Affect lability [Fatal]
  - Mental impairment [Fatal]
  - Suicidal ideation [Fatal]
  - Product prescribing issue [Fatal]
